FAERS Safety Report 5625058-3 (Version None)
Quarter: 2008Q1

REPORT INFORMATION
  Report Type: 
  Country: None (occurrence: None)
  Receive Date: 20080213
  Receipt Date: 20080204
  Transmission Date: 20080703
  Serious: Yes (Other)
  Sender: FDA-Public Use
  Company Number: CA-PFIZER INC-2008006450

PATIENT
  Age: 46 Year
  Sex: Female
  Weight: 63.5 kg

DRUGS (5)
  1. LYRICA [Suspect]
     Indication: MUSCULOSKELETAL PAIN
     Route: 048
  2. LYRICA [Suspect]
     Indication: PAIN
  3. HYDROCHLOROTHIAZIDE [Concomitant]
     Route: 048
  4. ALTACE [Concomitant]
     Route: 048
  5. METOPROLOL TARTRATE [Concomitant]
     Route: 048

REACTIONS (1)
  - HERPES ZOSTER [None]
